FAERS Safety Report 26075405 (Version 1)
Quarter: 2025Q4

REPORT INFORMATION
  Report Type: Spontaneous
  Country: CA (occurrence: None)
  Receive Date: 20251121
  Receipt Date: 20251121
  Transmission Date: 20260118
  Serious: Yes (Hospitalization, Other)
  Sender: ORGANON
  Company Number: CA-ORGANON-O2511CAN001293

PATIENT
  Age: 41 Year
  Sex: Female

DRUGS (9)
  1. NASONEX [Suspect]
     Active Substance: MOMETASONE FUROATE
     Indication: Product used for unknown indication
     Dosage: UNK
     Route: 065
  2. NASONEX [Suspect]
     Active Substance: MOMETASONE FUROATE
     Indication: Migraine
     Dosage: UNK
     Route: 065
  3. NASONEX [Suspect]
     Active Substance: MOMETASONE FUROATE
     Dosage: 6 DOSAGE FORM
     Route: 065
  4. MAXALT [Suspect]
     Active Substance: RIZATRIPTAN BENZOATE
     Indication: Migraine
     Dosage: 10 MILLIGRAM
     Route: 065
  5. MAXALT [Suspect]
     Active Substance: RIZATRIPTAN BENZOATE
     Indication: Product used for unknown indication
     Dosage: 10 MILLIGRAM, QD
     Route: 065
  6. MAXALT [Suspect]
     Active Substance: RIZATRIPTAN BENZOATE
     Indication: Migraine
     Dosage: 10 MILLIGRAM
     Route: 065
  7. MAXALT [Suspect]
     Active Substance: RIZATRIPTAN BENZOATE
     Dosage: 10 MILLIGRAM, QD
     Route: 065
  8. MAXALT [Suspect]
     Active Substance: RIZATRIPTAN BENZOATE
     Dosage: 1 DOSAGE FORM
     Route: 065
  9. MAXALT [Suspect]
     Active Substance: RIZATRIPTAN BENZOATE
     Dosage: 1 DOSAGE FORM
     Route: 065

REACTIONS (11)
  - Angioedema [Recovered/Resolved]
  - Drug ineffective [Recovered/Resolved]
  - Drug intolerance [Recovered/Resolved]
  - Dysphonia [Recovered/Resolved]
  - Headache [Recovered/Resolved]
  - Hypersensitivity [Recovered/Resolved]
  - Swelling face [Recovered/Resolved]
  - Swollen tongue [Recovered/Resolved]
  - Off label use [Recovered/Resolved]
  - Product use in unapproved indication [Recovered/Resolved]
  - Drug ineffective for unapproved indication [Recovered/Resolved]
